FAERS Safety Report 15899522 (Version 1)
Quarter: 2019Q1

REPORT INFORMATION
  Report Type: Spontaneous
  Country: US (occurrence: US)
  Receive Date: 20190110
  Receipt Date: 20190110
  Transmission Date: 20190417
  Serious: No
  Sender: FDA-Public Use
  Company Number: None

PATIENT
  Age: 74 Year
  Sex: Female

DRUGS (1)
  1. IMATINIB MES TAB 100MG [Suspect]
     Active Substance: IMATINIB MESYLATE
     Dates: start: 20180901

REACTIONS (5)
  - Oedema [None]
  - Anaemia [None]
  - Upper limb fracture [None]
  - Swelling [None]
  - Pneumonia [None]

NARRATIVE: CASE EVENT DATE: 20190109
